FAERS Safety Report 10435598 (Version 3)
Quarter: 2014Q4

REPORT INFORMATION
  Report Type: Spontaneous
  Country: IT (occurrence: IT)
  Receive Date: 20140908
  Receipt Date: 20141107
  Transmission Date: 20150528
  Serious: Yes (Life-Threatening)
  Sender: FDA-Public Use
  Company Number: IT-009507513-1409ITA001185

PATIENT
  Age: 55 Year
  Sex: Male

DRUGS (9)
  1. VICTRELIS [Suspect]
     Active Substance: BOCEPREVIR
     Indication: HEPATIC CIRRHOSIS
     Dosage: UNK, QD, TOTAL DAILY DOSE 2400 MG
     Route: 048
     Dates: start: 20140313, end: 20140722
  2. REBETOL [Suspect]
     Active Substance: RIBAVIRIN
     Indication: HEPATIC CIRRHOSIS
     Dosage: UNK, QD, TOTAL DAILY DOSE: 1000 MG
     Route: 048
     Dates: start: 20140217, end: 2014
  3. TAVOR [Concomitant]
     Active Substance: LORAZEPAM
     Route: 048
  4. PEGINTRON [Suspect]
     Active Substance: PEGINTERFERON ALFA-2B
     Indication: HEPATIC CIRRHOSIS
     Dosage: 135 MICROGRAM, WEEKLY
     Route: 058
     Dates: start: 20140217, end: 20140722
  5. DELTACORTENE [Concomitant]
     Active Substance: PREDNISONE
     Indication: DRUG ERUPTION
     Dosage: UNK
  6. AYRINAL [Concomitant]
     Indication: DRUG ERUPTION
     Dosage: UNK
  7. REBETOL [Suspect]
     Active Substance: RIBAVIRIN
     Dosage: UNK, QD, TOTAL DAILY DOSE: 200 MG
     Route: 048
     Dates: start: 2014, end: 20140722
  8. INDERAL [Concomitant]
     Active Substance: PROPRANOLOL HYDROCHLORIDE
     Indication: HYPERTENSION
     Dosage: UNK
     Route: 048
  9. EUTIROX [Concomitant]
     Active Substance: LEVOTHYROXINE SODIUM
     Indication: HYPOTHYROIDISM
     Dosage: UNK
     Route: 048

REACTIONS (2)
  - Diabetic ketoacidotic hyperglycaemic coma [Recovered/Resolved with Sequelae]
  - Diabetes mellitus [Recovered/Resolved with Sequelae]

NARRATIVE: CASE EVENT DATE: 20140722
